FAERS Safety Report 8771766 (Version 1)
Quarter: 2012Q4

REPORT INFORMATION
  Report Type: 
  Country: US (occurrence: US)
  Receive Date: 20120831
  Receipt Date: 20120831
  Transmission Date: 20130627
  Serious: Yes (Hospitalization)
  Sender: FDA-Public Use
  Company Number: US-ELI_LILLY_AND_COMPANY-US201208009435

PATIENT
  Sex: Female

DRUGS (13)
  1. FORTEO [Suspect]
     Indication: OSTEOPOROSIS
     Dosage: 20 ug, qd
     Dates: start: 201205
  2. AMLODIPINE BESILATE [Concomitant]
     Dosage: UNK
  3. FOLIC ACID [Concomitant]
     Dosage: UNK
  4. POTASSIUM CHLORIDE [Concomitant]
     Dosage: UNK
  5. TOPROL [Concomitant]
     Dosage: UNK
  6. PREDNISONE [Concomitant]
     Dosage: 0.3 mg, UNK
  7. PROZAC [Concomitant]
     Dosage: 20 mg, UNK
  8. LISINOPRIL [Concomitant]
     Dosage: 40 mg, UNK
  9. SIMVASTATIN [Concomitant]
     Dosage: UNK
  10. TRAZODONE [Concomitant]
     Dosage: UNK
  11. ASPIRIN [Concomitant]
     Dosage: UNK
  12. OSCAL [Concomitant]
     Dosage: UNK
  13. HYDROCODONE [Concomitant]
     Indication: PAIN
     Dosage: UNK

REACTIONS (3)
  - Spinal fracture [Unknown]
  - Rib fracture [Unknown]
  - Pain [Unknown]
